FAERS Safety Report 4577577-9 (Version None)
Quarter: 2005Q1

REPORT INFORMATION
  Report Type: 
  Country: None (occurrence: None)
  Receive Date: 20050210
  Receipt Date: 20020514
  Transmission Date: 20050727
  Serious: Yes (Death)
  Sender: FDA-Public Use
  Company Number: US-MERCK-0205USA01792

PATIENT
  Age: 64 Year
  Sex: Male
  Weight: 80 kg

DRUGS (7)
  1. VIOXX [Suspect]
     Indication: OSTEOARTHRITIS
     Route: 048
     Dates: start: 20010129
  2. VIOXX [Suspect]
     Route: 048
     Dates: start: 20010207
  3. VIOXX [Suspect]
     Route: 048
     Dates: start: 20010529
  4. VIOXX [Suspect]
     Indication: BACK PAIN
     Route: 048
     Dates: start: 20010129
  5. VIOXX [Suspect]
     Route: 048
     Dates: start: 20010207
  6. VIOXX [Suspect]
     Route: 048
     Dates: start: 20010529
  7. LOPRESSOR [Concomitant]
     Route: 065
     Dates: start: 20010101, end: 20010603

REACTIONS (9)
  - ACUTE MYOCARDIAL INFARCTION [None]
  - CARDIAC FAILURE [None]
  - CARDIOMYOPATHY [None]
  - CORONARY ARTERY THROMBOSIS [None]
  - DRUG EFFECT DECREASED [None]
  - GASTROOESOPHAGEAL REFLUX DISEASE [None]
  - NERVE STIMULATION TEST ABNORMAL [None]
  - NEURALGIA [None]
  - NEUROPATHY PERIPHERAL [None]
